FAERS Safety Report 25884483 (Version 1)
Quarter: 2025Q4

REPORT INFORMATION
  Report Type: Spontaneous
  Country: EU (occurrence: EU)
  Receive Date: 20251006
  Receipt Date: 20251006
  Transmission Date: 20260118
  Serious: Yes (Other)
  Sender: AUROBINDO
  Company Number: EU-MINISAL02-1058551

PATIENT
  Age: 44 Year
  Sex: Male
  Weight: 62 kg

DRUGS (1)
  1. OXALIPLATIN [Suspect]
     Active Substance: OXALIPLATIN
     Indication: Small intestine adenocarcinoma
     Dosage: PROTOCOLLO ADIUVANTE CAPOX Q21
     Route: 042
     Dates: start: 202502, end: 20250825

REACTIONS (1)
  - Myelosuppression [Unknown]

NARRATIVE: CASE EVENT DATE: 20250917
